FAERS Safety Report 7967426-0 (Version None)
Quarter: 2011Q4

REPORT INFORMATION
  Report Type: 
  Country: None (occurrence: None)
  Receive Date: 20111207
  Receipt Date: 20111130
  Transmission Date: 20120403
  Serious: Yes (Other)
  Sender: FDA-Public Use
  Company Number: AUR-APL-2011-06016

PATIENT
  Age: 76 Year
  Sex: Female
  Weight: 70.3075 kg

DRUGS (6)
  1. ALENDRONIC ACID (ALENDORIC ACID) (ALENDRONIC ACID) [Suspect]
     Indication: OSTEOPOROSIS
     Dosage: 20 MG (70 MG, 2 IN 1 WK), ORAL, 20 MG (70 MG, 2 IN 1 WK), ORAL, 70 MG, 1 WK, ORAL
     Route: 048
     Dates: start: 20110927
  2. ALENDRONIC ACID (ALENDORIC ACID) (ALENDRONIC ACID) [Suspect]
     Indication: OSTEOPOROSIS
     Dosage: 20 MG (70 MG, 2 IN 1 WK), ORAL, 20 MG (70 MG, 2 IN 1 WK), ORAL, 70 MG, 1 WK, ORAL
     Route: 048
     Dates: start: 20111004
  3. ALENDRONIC ACID (ALENDORIC ACID) (ALENDRONIC ACID) [Suspect]
     Indication: OSTEOPOROSIS
     Dosage: 20 MG (70 MG, 2 IN 1 WK), ORAL, 20 MG (70 MG, 2 IN 1 WK), ORAL, 70 MG, 1 WK, ORAL
     Route: 048
     Dates: start: 20111013
  4. DILANTIN [Concomitant]
  5. WARFARIN SODIUM [Concomitant]
  6. PHENOBARBITAL TAB [Concomitant]

REACTIONS (2)
  - DIZZINESS [None]
  - INCORRECT DOSE ADMINISTERED [None]
